FAERS Safety Report 10209223 (Version 1)
Quarter: 2014Q2

REPORT INFORMATION
  Report Type: Report from Study
  Country: GB (occurrence: GB)
  Receive Date: 20140530
  Receipt Date: 20140530
  Transmission Date: 20141212
  Serious: Yes (Hospitalization)
  Sender: FDA-Public Use
  Company Number: GB-ASTRAZENECA-2014SE35657

PATIENT
  Age: 27087 Day
  Sex: Male
  Weight: 72 kg

DRUGS (9)
  1. VANDETANIB [Suspect]
     Indication: PANCREATIC CARCINOMA
     Route: 048
     Dates: start: 20130923
  2. VANDETANIB [Suspect]
     Indication: PANCREATIC CARCINOMA
     Route: 048
  3. VANDETANIB [Suspect]
     Indication: PANCREATIC CARCINOMA
     Route: 048
     Dates: start: 20131118, end: 20140324
  4. GEMCITABINE [Suspect]
     Indication: PANCREATIC CARCINOMA
     Dosage: 1000 MG/M2 FOR 3 CONSECUTIVE WEEKS FOLLOWED BY 1-WEEK BREAK
     Route: 042
     Dates: start: 20130923
  5. GEMCITABINE [Suspect]
     Indication: PANCREATIC CARCINOMA
     Dosage: 1900 MG/M2 FOR 3 CONSECUTIVE WEEKS FOLLOWED BY 1-WEEK BREAK
     Route: 042
     Dates: start: 20131118
  6. GEMCITABINE [Suspect]
     Indication: PANCREATIC CARCINOMA
     Dosage: 1400 MG/M2 FOR 3 CONSECUTIVE WEEKS FOLLOWED BY 1-WEEK BREAK
     Route: 042
     Dates: start: 20140127
  7. GEMCITABINE [Suspect]
     Indication: PANCREATIC CARCINOMA
     Dosage: 1900 MG/M2 FOR 3 CONSECUTIVE WEEKS FOLLOWED BY 1-WEEK BREAK
     Route: 042
     Dates: start: 20140210, end: 20140317
  8. CYCLIZINE [Concomitant]
     Indication: NAUSEA
     Route: 048
     Dates: start: 20130930
  9. PARACETAMOL [Concomitant]
     Indication: PAIN
     Route: 048
     Dates: start: 20140127

REACTIONS (1)
  - Pelvic infection [Recovered/Resolved]
